FAERS Safety Report 6661416-6 (Version None)
Quarter: 2010Q1

REPORT INFORMATION
  Report Type: 
  Country: None (occurrence: None)
  Receive Date: 20100331
  Receipt Date: 20100316
  Transmission Date: 20100710
  Serious: Yes (Hospitalization)
  Sender: FDA-Public Use
  Company Number: IE-MEDIMMUNE-MEDI-0010871

PATIENT
  Sex: Male

DRUGS (3)
  1. SYNAGIS [Suspect]
     Dates: start: 20100118, end: 20100219
  2. KAPSOVIT [Concomitant]
  3. FERROUS SULFATE TAB [Concomitant]

REACTIONS (3)
  - BLOOD SODIUM DECREASED [None]
  - BRONCHIOLITIS [None]
  - DIARRHOEA [None]
